FAERS Safety Report 9530156 (Version 5)
Quarter: 2013Q4

REPORT INFORMATION
  Report Type: Report from Study
  Country: US (occurrence: US)
  Receive Date: 20130917
  Receipt Date: 20131025
  Transmission Date: 20140711
  Serious: Yes (Hospitalization)
  Sender: FDA-Public Use
  Company Number: US-TAKEDA-2013MPI000143

PATIENT
  Age: 72 Year
  Sex: Female
  Weight: 59.41 kg

DRUGS (12)
  1. VELCADE [Suspect]
     Indication: PLASMA CELL MYELOMA
     Dosage: 2.15 MG, UNK
     Route: 042
     Dates: start: 20120227, end: 20130812
  2. BENDAMUSTINE [Suspect]
     Indication: PLASMA CELL MYELOMA
     Dosage: 132 MG, UNK
     Route: 042
     Dates: start: 20120227, end: 20120814
  3. BENDAMUSTINE [Suspect]
     Dosage: UNK
     Dates: start: 20120814
  4. DEXAMETHASONE [Suspect]
     Indication: PLASMA CELL MYELOMA
     Dosage: 20 MG, UNK
     Route: 042
     Dates: start: 20120227, end: 20130107
  5. LOSARTAN POTASSIUM W/HYDROCHLOROTHIAZIDE [Concomitant]
     Indication: HYPERTENSION
     Dosage: UNK
     Dates: start: 201112
  6. AMIODARONE [Concomitant]
     Indication: ARRHYTHMIA
     Dosage: 200 MG, QD
     Dates: start: 2001
  7. ESTRADIOL [Concomitant]
     Indication: HORMONE REPLACEMENT THERAPY
     Dosage: 0.5 MG, QD
     Dates: start: 1980
  8. OMEPRAZOLE [Concomitant]
     Indication: GASTROOESOPHAGEAL REFLUX DISEASE
     Dosage: 40 MG, QD
     Dates: start: 2006
  9. LASIX                              /00032601/ [Concomitant]
     Indication: DIURETIC THERAPY
     Dosage: 20 MG, QD
     Dates: start: 2009
  10. HYDROCODONE [Concomitant]
     Indication: BACK PAIN
     Dosage: UNK, Q4HR
  11. CHOLESTYRAMINE [Concomitant]
     Indication: DIARRHOEA
     Dosage: 4 G, UNK
     Dates: start: 1990
  12. ACYCLOVIR                          /00587301/ [Concomitant]
     Indication: ANTIVIRAL PROPHYLAXIS
     Dosage: 400 MG, BID
     Dates: start: 20120227

REACTIONS (1)
  - Salivary duct obstruction [Recovered/Resolved]
